FAERS Safety Report 8085680-4 (Version None)
Quarter: 2012Q1

REPORT INFORMATION
  Report Type: 
  Country: None (occurrence: None)
  Receive Date: 20120128
  Receipt Date: 20110404
  Transmission Date: 20120608
  Serious: No
  Sender: FDA-Public Use
  Company Number: US-ABBOTT-11P-163-0716380-00

PATIENT
  Age: 81 Year
  Sex: Female

DRUGS (6)
  1. CLONIDINE [Concomitant]
     Indication: HYPERTENSION
  2. METOPROLOL TARTRATE [Concomitant]
     Indication: HYPERTENSION
  3. ASPIRIN [Concomitant]
     Indication: PRODUCT USED FOR UNKNOWN INDICATION
  4. HUMIRA [Suspect]
     Indication: RHEUMATOID ARTHRITIS
     Dates: start: 20040101
  5. MULTI-VITAMIN [Concomitant]
     Indication: PRODUCT USED FOR UNKNOWN INDICATION
  6. LODINE [Concomitant]
     Indication: INFLAMMATION

REACTIONS (4)
  - RHINORRHOEA [None]
  - COUGH [None]
  - FEELING ABNORMAL [None]
  - SINUSITIS [None]
